FAERS Safety Report 4327291-X (Version None)
Quarter: 2004Q1

REPORT INFORMATION
  Report Type: 
  Country: None (occurrence: None)
  Receive Date: 20040325
  Receipt Date: 20031201
  Transmission Date: 20041129
  Serious: No
  Sender: FDA-Public Use
  Company Number: PHEH2003US10973

PATIENT
  Sex: Male

DRUGS (2)
  1. TRILEPTAL [Suspect]
     Indication: EPILEPSY
     Dosage: 5 ML QAM + 4 ML QHS, ORAL
     Route: 048
     Dates: start: 20030601
  2. THYROID TAB [Concomitant]

REACTIONS (2)
  - MEDICATION ERROR [None]
  - URTICARIA [None]
